FAERS Safety Report 6459120-2 (Version None)
Quarter: 2009Q4

REPORT INFORMATION
  Report Type: 
  Country: None (occurrence: None)
  Receive Date: 20091127
  Receipt Date: 20091124
  Transmission Date: 20100525
  Serious: Yes (Other)
  Sender: FDA-Public Use
  Company Number: SE-BRISTOL-MYERS SQUIBB COMPANY-14192397

PATIENT
  Age: 74 Year
  Sex: Female

DRUGS (6)
  1. APROVEL FILM-COATED TABS 75 MG [Suspect]
     Indication: ESSENTIAL HYPERTENSION
     Route: 048
     Dates: start: 20080109
  2. AMLODIPINE [Concomitant]
     Dosage: ACTAVIS
     Route: 048
  3. DUROFERON [Concomitant]
     Dosage: FE 2+ PROLONGRD RELEASE TABS
     Route: 048
  4. ETALPHA [Concomitant]
     Dosage: CAPSULE SOFT
     Route: 048
  5. PINDOLOL [Concomitant]
     Dosage: MYLAN TAB
     Route: 048
  6. CALCIDON [Concomitant]
     Dosage: CHEWABLE TAB
     Route: 048

REACTIONS (1)
  - HALLUCINATION [None]
